FAERS Safety Report 17166322 (Version 2)
Quarter: 2020Q1

REPORT INFORMATION
  Report Type: Spontaneous
  Country: GB (occurrence: GB)
  Receive Date: 20191217
  Receipt Date: 20200309
  Transmission Date: 20200409
  Serious: Yes (Other)
  Sender: FDA-Public Use
  Company Number: GB-NOVOPROD-701016

PATIENT
  Age: 9 Year
  Sex: Female
  Weight: 24 kg

DRUGS (7)
  1. AZITHROMYCIN ANHYDROUS. [Concomitant]
     Active Substance: AZITHROMYCIN ANHYDROUS
     Dosage: 600 MG, QW, OR 5 TIME WEEKLY IF UNWELL
     Route: 065
     Dates: start: 20190128
  2. LACTULOSE. [Concomitant]
     Active Substance: LACTULOSE
     Dosage: UNK
     Route: 065
  3. SALMETEROL [Concomitant]
     Active Substance: SALMETEROL
     Dosage: 50 ?G, QD
     Route: 065
     Dates: start: 20190815
  4. NORDITROPIN [Suspect]
     Active Substance: SOMATROPIN
     Indication: GROWTH RETARDATION
     Dosage: 0.8 MG
     Route: 058
     Dates: start: 20180418
  5. SALBUTAMOL [Concomitant]
     Active Substance: ALBUTEROL
     Dosage: 100 ?G, 4 TO 6 PUFFS UP TO EVERY 4 HOURS
     Route: 065
  6. CASSIA [Concomitant]
     Dosage: UNK
     Route: 065
  7. CLENIL MODULITE [Concomitant]
     Active Substance: BECLOMETHASONE DIPROPIONATE
     Dosage: 400 ?G, QD
     Route: 065

REACTIONS (4)
  - Pain in extremity [Recovered/Resolved]
  - Stress fracture [Recovered/Resolved]
  - Granuloma [Recovered/Resolved]
  - Condition aggravated [Recovered/Resolved]

NARRATIVE: CASE EVENT DATE: 20180918
